FAERS Safety Report 6679417-0 (Version None)
Quarter: 2010Q2

REPORT INFORMATION
  Report Type: 
  Country: None (occurrence: None)
  Receive Date: 20100408
  Receipt Date: 20100329
  Transmission Date: 20101027
  Serious: No
  Sender: FDA-Public Use
  Company Number: 2010-00352

PATIENT
  Sex: Female

DRUGS (3)
  1. ZICAM COLD REMEDY GEL SWABS [Suspect]
     Dosage: AS DIRECTED  4 MTS
     Dates: start: 20081101, end: 20090301
  2. ZICAM COLD REMEDY NASAL GEL [Suspect]
     Dosage: AS DIRECTED 4 MTS
     Dates: start: 20081101, end: 20090301
  3. ZICAM ALLERGY RELIEF GEL SWABS [Suspect]
     Dosage: AS DIRECTED, --4 MTS
     Dates: start: 20081101, end: 20090301

REACTIONS (2)
  - AGEUSIA [None]
  - ANOSMIA [None]
